FAERS Safety Report 7492219-0 (Version None)
Quarter: 2011Q2

REPORT INFORMATION
  Report Type: 
  Country: None (occurrence: None)
  Receive Date: 20110519
  Receipt Date: 20101116
  Transmission Date: 20111010
  Serious: No
  Sender: FDA-Public Use
  Company Number: US-NOVEN-ALL1-2010-06037

PATIENT
  Sex: Female
  Weight: 54.422 kg

DRUGS (2)
  1. DAYTRANA [Suspect]
     Dosage: 20 MG, UNKNOWN
     Route: 062
     Dates: start: 20101005, end: 20101001
  2. DAYTRANA [Suspect]
     Dosage: UNK MG, OTHER (20 MG PATCH AND 1/2 OF 20 MG PATCH ON SCHOOL DAYS)
     Route: 062
     Dates: start: 20101026

REACTIONS (7)
  - ERYTHEMA [None]
  - DRUG PRESCRIBING ERROR [None]
  - BODY TEMPERATURE INCREASED [None]
  - ABNORMAL LOSS OF WEIGHT [None]
  - NAUSEA [None]
  - WRONG TECHNIQUE IN DRUG USAGE PROCESS [None]
  - FEELING HOT [None]
